FAERS Safety Report 7588710-9 (Version None)
Quarter: 2011Q3

REPORT INFORMATION
  Report Type: 
  Country: None (occurrence: None)
  Receive Date: 20110705
  Receipt Date: 20110627
  Transmission Date: 20111222
  Serious: Yes (Other)
  Sender: FDA-Public Use
  Company Number: US-SANOFI-AVENTIS-2011SA041496

PATIENT
  Sex: Female

DRUGS (1)
  1. ALLEGRA D 24 HOUR [Suspect]
     Route: 048
     Dates: start: 19960101

REACTIONS (2)
  - CARDIAC DISORDER [None]
  - ARTERIAL OCCLUSIVE DISEASE [None]
